FAERS Safety Report 4797415-9 (Version None)
Quarter: 2005Q4

REPORT INFORMATION
  Report Type: 
  Country: None (occurrence: None)
  Receive Date: 20051013
  Receipt Date: 20050912
  Transmission Date: 20060501
  Serious: Yes (Hospitalization)
  Sender: FDA-Public Use
  Company Number: FR-BRISTOL-MYERS SQUIBB COMPANY-13108477

PATIENT
  Age: 78 Year
  Sex: Male

DRUGS (7)
  1. BRISTOPEN [Suspect]
     Indication: SEPSIS
     Route: 048
     Dates: start: 20050804, end: 20050822
  2. CALPARINE [Suspect]
     Indication: SEPSIS
     Dates: start: 20050813, end: 20050822
  3. TOPALGIC [Suspect]
     Indication: SEPSIS
     Dates: start: 20050817, end: 20050822
  4. MOPRAL [Suspect]
     Indication: SEPSIS
     Dates: start: 20050813, end: 20050822
  5. CALCIDIA [Suspect]
     Dosage: DOSAGE FORM = SACHETS
     Dates: end: 20050822
  6. PROZAC [Suspect]
     Dates: end: 20050822
  7. LASILIX [Suspect]
     Dates: end: 20050823

REACTIONS (1)
  - THROMBOCYTOPENIA [None]
